FAERS Safety Report 8849808 (Version 6)
Quarter: 2013Q1

REPORT INFORMATION
  Report Type: Report from Study
  Country: FR (occurrence: FR)
  Receive Date: 20121019
  Receipt Date: 20130115
  Transmission Date: 20140127
  Serious: Yes (Death, Hospitalization, Other)
  Sender: FDA-Public Use
  Company Number: FR-TEVA-364645USA

PATIENT
  Age: 73 Year
  Sex: Male
  Weight: 63 kg

DRUGS (12)
  1. TREANDA [Suspect]
     Indication: MANTLE CELL LYMPHOMA
     Dosage: UID/QD
     Route: 042
     Dates: start: 20120724
  2. TREANDA [Suspect]
     Dosage: UID/QD
     Route: 042
     Dates: start: 20120919
  3. TREANDA [Suspect]
     Route: 042
     Dates: start: 20120724
  4. MABTHERA [Suspect]
     Indication: MANTLE CELL LYMPHOMA
     Dosage: UID/QD
     Route: 042
     Dates: start: 20120724
  5. MABTHERA [Suspect]
     Dosage: UID/QD
     Route: 042
     Dates: start: 20120727
  6. VELCADE [Suspect]
     Indication: MANTLE CELL LYMPHOMA
     Route: 058
     Dates: start: 20120724
  7. VELCADE [Suspect]
     Route: 058
     Dates: start: 20120928
  8. VELCADE [Suspect]
     Route: 058
     Dates: start: 20120724
  9. DEXAMETHASONE [Suspect]
     Indication: MANTLE CELL LYMPHOMA
     Route: 042
     Dates: start: 20120918
  10. ZELITREX [Concomitant]
     Dates: end: 20120929
  11. TRAMADOL [Concomitant]
  12. SEROPLEX [Concomitant]
     Dates: start: 20120927

REACTIONS (6)
  - Fall [Fatal]
  - Malignant neoplasm progression [Fatal]
  - Staphylococcal sepsis [Fatal]
  - Depression [Fatal]
  - General physical health deterioration [Fatal]
  - Malnutrition [Fatal]
